FAERS Safety Report 18149611 (Version 1)
Quarter: 2020Q3

REPORT INFORMATION
  Report Type: Spontaneous
  Country: CA (occurrence: CA)
  Receive Date: 20200814
  Receipt Date: 20200814
  Transmission Date: 20201103
  Serious: Yes (Life-Threatening, Hospitalization)
  Sender: FDA-Public Use
  Company Number: CA-TEVA-2020-CA-1813408

PATIENT
  Age: 87 Year
  Sex: Male

DRUGS (15)
  1. VALACYCLOVIR [Suspect]
     Active Substance: VALACYCLOVIR HYDROCHLORIDE
     Indication: HERPES ZOSTER
     Route: 048
  2. ACETAMINOPHEN. [Concomitant]
     Active Substance: ACETAMINOPHEN
  3. CINACALCET. [Concomitant]
     Active Substance: CINACALCET
  4. IRON [Concomitant]
     Active Substance: IRON
  5. MELATONIN [Concomitant]
     Active Substance: MELATONIN
  6. ROSUVASTATIN. [Concomitant]
     Active Substance: ROSUVASTATIN
  7. PEGINTRON [Concomitant]
     Active Substance: PEGINTERFERON ALFA-2B
  8. RABEPRAZOLE [Concomitant]
     Active Substance: RABEPRAZOLE
  9. REPLAVITE [Concomitant]
  10. BISOPROLOL [Concomitant]
     Active Substance: BISOPROLOL
  11. LEVOTHYROXINE. [Concomitant]
     Active Substance: LEVOTHYROXINE
  12. ARANESP [Concomitant]
     Active Substance: DARBEPOETIN ALFA
  13. ONE ALPHA [Concomitant]
     Active Substance: ALFACALCIDOL
  14. SYMBICORT [Concomitant]
     Active Substance: BUDESONIDE\FORMOTEROL FUMARATE DIHYDRATE
  15. SYMBICORT [Concomitant]
     Active Substance: BUDESONIDE\FORMOTEROL FUMARATE DIHYDRATE

REACTIONS (1)
  - Delirium [Not Recovered/Not Resolved]
